FAERS Safety Report 17133017 (Version 2)
Quarter: 2020Q2

REPORT INFORMATION
  Report Type: Spontaneous
  Country: NL (occurrence: NL)
  Receive Date: 20191210
  Receipt Date: 20200618
  Transmission Date: 20200713
  Serious: Yes (Other)
  Sender: FDA-Public Use
  Company Number: NL-AUROBINDO-AUR-APL-2019-104592

PATIENT
  Sex: Female

DRUGS (1)
  1. DEXAMETHASON TABLETS [Suspect]
     Active Substance: DEXAMETHASONE
     Indication: ATRIOVENTRICULAR BLOCK
     Dosage: UNK (INITIAL DOSE OF 8 MG/D RANGE: 2 MG-16 MG/D)
     Route: 065

REACTIONS (2)
  - Psychotic disorder [Unknown]
  - Maternal exposure during pregnancy [Unknown]
